FAERS Safety Report 17999343 (Version 1)
Quarter: 2020Q3

REPORT INFORMATION
  Report Type: Spontaneous
  Country: US (occurrence: US)
  Receive Date: 20200708
  Receipt Date: 20200708
  Transmission Date: 20201103
  Serious: Yes (Hospitalization)
  Sender: FDA-Public Use
  Company Number: None

PATIENT
  Age: 8 Year
  Sex: Female

DRUGS (12)
  1. OPSUMIT [Suspect]
     Active Substance: MACITENTAN
     Indication: PULMONARY HYPERTENSION
     Route: 048
     Dates: start: 201808
  2. METOLAZONE. [Concomitant]
     Active Substance: METOLAZONE
  3. VITAMIN D3 [Concomitant]
     Active Substance: CHOLECALCIFEROL
  4. CINACALCET. [Concomitant]
     Active Substance: CINACALCET
  5. FERROUS SULFATE. [Concomitant]
     Active Substance: FERROUS SULFATE
  6. ESTRADIOL. [Concomitant]
     Active Substance: ESTRADIOL
  7. TADALAFIL. [Concomitant]
     Active Substance: TADALAFIL
  8. CALCITRIOL. [Concomitant]
     Active Substance: CALCITRIOL
  9. COLCHICINE. [Concomitant]
     Active Substance: COLCHICINE
  10. FUROSEMIDE. [Concomitant]
     Active Substance: FUROSEMIDE
  11. LEVOTHYROXINE. [Concomitant]
     Active Substance: LEVOTHYROXINE
  12. CARVEDILOL. [Concomitant]
     Active Substance: CARVEDILOL

REACTIONS (7)
  - Dyspnoea [None]
  - Acute kidney injury [None]
  - Cardiac failure congestive [None]
  - Weight increased [None]
  - Fall [None]
  - Hyponatraemia [None]
  - Oedema peripheral [None]

NARRATIVE: CASE EVENT DATE: 20200622
